FAERS Safety Report 4406617-2 (Version None)
Quarter: 2004Q3

REPORT INFORMATION
  Report Type: 
  Country: None (occurrence: None)
  Receive Date: 20040723
  Receipt Date: 20040630
  Transmission Date: 20050211
  Serious: Yes (Hospitalization)
  Sender: FDA-Public Use
  Company Number: US-BRISTOL-MYERS SQUIBB COMPANY-12629440

PATIENT
  Age: 72 Year
  Sex: Female

DRUGS (12)
  1. IRINOTECAN [Suspect]
     Indication: COLORECTAL CANCER METASTATIC
     Dosage: CAME OFF STUDY ON 18-MAY-2004.
     Route: 042
     Dates: start: 20040518, end: 20040518
  2. ERBITUX [Suspect]
     Indication: COLON CANCER METASTATIC
     Dates: start: 20040615, end: 20040615
  3. WARFARIN SODIUM [Concomitant]
     Route: 048
     Dates: start: 20040225
  4. IBUPROFEN [Concomitant]
     Route: 048
     Dates: start: 20040314
  5. HYDROCODONE [Concomitant]
     Route: 048
     Dates: start: 20040426
  6. ACETAMINOPHEN [Concomitant]
     Route: 048
     Dates: start: 20040424
  7. METOPROLOL [Concomitant]
     Route: 048
     Dates: start: 19750101
  8. ATORVASTATIN CALCIUM [Concomitant]
     Route: 048
     Dates: start: 20010101
  9. LEVOTHYROXIN [Concomitant]
     Route: 048
     Dates: start: 19530101
  10. AMLODIPINE [Concomitant]
     Route: 048
     Dates: start: 20000101
  11. LORAZEPAM [Concomitant]
     Route: 048
     Dates: start: 20030101
  12. GABAPENTIN [Concomitant]
     Route: 048
     Dates: start: 20040401

REACTIONS (8)
  - ASTHENIA [None]
  - CHILLS [None]
  - DIZZINESS [None]
  - ENTERITIS [None]
  - FALL [None]
  - HYPOKALAEMIA [None]
  - NEUTROPENIA [None]
  - PYREXIA [None]
